FAERS Safety Report 4520458-7 (Version None)
Quarter: 2004Q4

REPORT INFORMATION
  Report Type: 
  Country: None (occurrence: None)
  Receive Date: 20041203
  Receipt Date: 20041122
  Transmission Date: 20050328
  Serious: Yes (Hospitalization, Other)
  Sender: FDA-Public Use
  Company Number: HQWYE681824NOV04

PATIENT
  Age: 50 Year
  Sex: Male
  Weight: 74.4 kg

DRUGS (8)
  1. RAPAMUNE [Suspect]
     Indication: PROPHYLAXIS AGAINST TRANSPLANT REJECTION
     Dosage: 4 MG 1X PER 1 DAY, ORAL
     Route: 048
     Dates: start: 20030626
  2. PROGRAF (TACROLIMUS) [Concomitant]
  3. PREDNISONE [Concomitant]
  4. LABETALOL HCL [Concomitant]
  5. LOPID [Concomitant]
  6. ASPIRIN [Concomitant]
  7. ZANTAC [Concomitant]
  8. BACTRIM [Concomitant]

REACTIONS (5)
  - ANAEMIA OF CHRONIC DISEASE [None]
  - BLOOD PRESSURE INCREASED [None]
  - KIDNEY TRANSPLANT REJECTION [None]
  - PERIRENAL HAEMATOMA [None]
  - RENAL FAILURE ACUTE [None]
